FAERS Safety Report 9719599 (Version 2)
Quarter: 2013Q4

REPORT INFORMATION
  Report Type: Spontaneous
  Country: US (occurrence: US)
  Receive Date: 20131128
  Receipt Date: 20131217
  Transmission Date: 20140711
  Serious: No
  Sender: FDA-Public Use
  Company Number: US-BIOGENIDEC-2013BI112929

PATIENT
  Age: 47 Year
  Sex: Female

DRUGS (2)
  1. AVONEX [Suspect]
     Indication: MULTIPLE SCLEROSIS
     Route: 030
     Dates: start: 20131108
  2. AVONEX [Suspect]
     Indication: MULTIPLE SCLEROSIS
     Route: 030
     Dates: start: 20131115

REACTIONS (6)
  - Disorientation [Recovered/Resolved]
  - Anxiety [Recovered/Resolved]
  - Confusional state [Unknown]
  - Rash [Recovered/Resolved]
  - Muscle spasms [Not Recovered/Not Resolved]
  - Headache [Recovered/Resolved]
